FAERS Safety Report 5145284-X (Version None)
Quarter: 2006Q4

REPORT INFORMATION
  Report Type: 
  Country: None (occurrence: None)
  Receive Date: 20061107
  Receipt Date: 20061026
  Transmission Date: 20070319
  Serious: Yes (Hospitalization, Other)
  Sender: FDA-Public Use
  Company Number: US-ELI_LILLY_AND_COMPANY-US200610005050

PATIENT
  Sex: Female

DRUGS (3)
  1. HUMULIN R [Suspect]
     Indication: DIABETES MELLITUS
     Dosage: UNK, UNK
     Route: 058
     Dates: start: 19900101
  2. ANTIHYPERTENSIVES [Concomitant]
     Indication: HYPERTENSION
  3. VITAMINS [Concomitant]

REACTIONS (5)
  - BLOOD GLUCOSE INCREASED [None]
  - CARDIAC OPERATION [None]
  - CATARACT OPERATION [None]
  - RENAL IMPAIRMENT [None]
  - VISUAL ACUITY REDUCED [None]
